FAERS Safety Report 7515421-8 (Version None)
Quarter: 2011Q2

REPORT INFORMATION
  Report Type: 
  Country: None (occurrence: None)
  Receive Date: 20110425
  Receipt Date: 20100413
  Transmission Date: 20111010
  Serious: Yes (Other)
  Sender: FDA-Public Use
  Company Number: MC201000108

PATIENT
  Age: 52 Year
  Sex: Male
  Weight: 181.5 kg

DRUGS (2)
  1. ANGIOMAX [Suspect]
     Indication: PERCUTANEOUS CORONARY INTERVENTION
     Dosage: 0.75 MG/KG, BOLUS, INTRAVENOUS, 1.75 MG/KG, HR, INTRAVENOUS
     Route: 040
     Dates: start: 20100316, end: 20100316
  2. ANGIOMAX [Suspect]
     Indication: PERCUTANEOUS CORONARY INTERVENTION
     Dosage: 0.75 MG/KG, BOLUS, INTRAVENOUS, 1.75 MG/KG, HR, INTRAVENOUS
     Route: 040
     Dates: start: 20100316, end: 20100316

REACTIONS (1)
  - THROMBOSIS [None]
